FAERS Safety Report 6406629-3 (Version None)
Quarter: 2009Q4

REPORT INFORMATION
  Report Type: 
  Country: None (occurrence: None)
  Receive Date: 20091014
  Receipt Date: 20091001
  Transmission Date: 20100525
  Serious: Yes (Other)
  Sender: FDA-Public Use
  Company Number: 2009AP004000

PATIENT
  Age: 52 Year
  Sex: Female

DRUGS (3)
  1. CITALOPRAM HYDROBROMIDE [Suspect]
     Indication: DEPRESSION
     Dosage: PO, TAB; PO;
     Route: 048
     Dates: start: 20071101, end: 20080401
  2. AMITRIPTYLINE HYDROCHLORIDE [Suspect]
  3. METHADONE HCL [Suspect]

REACTIONS (6)
  - AMNESIA [None]
  - DIZZINESS [None]
  - FATIGUE [None]
  - FEELING ABNORMAL [None]
  - HYPERSOMNIA [None]
  - MENTAL IMPAIRMENT [None]
